FAERS Safety Report 7295491-5 (Version None)
Quarter: 2011Q1

REPORT INFORMATION
  Report Type: 
  Country: None (occurrence: None)
  Receive Date: 20110216
  Receipt Date: 20101122
  Transmission Date: 20110831
  Serious: No
  Sender: FDA-Public Use
  Company Number: US-ABBOTT-10P-163-0687070-00

PATIENT
  Age: 73 Year
  Sex: Male
  Weight: 74.91 kg

DRUGS (1)
  1. SIMCOR [Suspect]
     Indication: BLOOD CHOLESTEROL INCREASED
     Dosage: 500/20
     Dates: start: 20101001

REACTIONS (2)
  - HEADACHE [None]
  - FLUSHING [None]
